FAERS Safety Report 18429502 (Version 2)
Quarter: 2025Q3

REPORT INFORMATION
  Report Type: Spontaneous
  Country: EU (occurrence: EU)
  Receive Date: 20201027
  Receipt Date: 20250825
  Transmission Date: 20251020
  Serious: Yes (Life-Threatening, Other)
  Sender: AUROBINDO
  Company Number: EU-GLAXOSMITHKLINE-CZ2020EME196735

PATIENT
  Age: 63 Year
  Sex: Female

DRUGS (8)
  1. ATORVASTATIN [Suspect]
     Active Substance: ATORVASTATIN
     Indication: Hypertension
     Dosage: 10 MILLIGRAM, ONCE A DAY (IN THE MORNING)
     Route: 065
  2. BISOPROLOL [Suspect]
     Active Substance: BISOPROLOL
     Indication: Hypertension
     Dosage: 5 MILLIGRAM, ONCE A DAY
     Route: 065
  3. LOSARTAN [Suspect]
     Active Substance: LOSARTAN
     Indication: Hypertension
     Dosage: UNK UNK, TWO TIMES A DAY (MORNING AND EVENING)
     Route: 065
  4. METFORMIN [Suspect]
     Active Substance: METFORMIN HYDROCHLORIDE
     Indication: Type 2 diabetes mellitus
     Dosage: 1000 MILLIGRAM, TWO TIMES A DAY (IN THE MORNING AND EVENING)
     Route: 065
  5. ASPIRIN [Suspect]
     Active Substance: ASPIRIN
     Indication: Hypertension
     Route: 065
  6. AMILORIDE HYDROCHLORIDE [Suspect]
     Active Substance: AMILORIDE HYDROCHLORIDE
     Indication: Diuretic therapy
     Dosage: 0.5 DOSAGE FORM, ONCE A DAY (IN THE MORNING)
     Route: 065
  7. PERINDOPRIL [Concomitant]
     Active Substance: PERINDOPRIL
     Indication: Hypertension
     Route: 065
  8. INDAPAMIDE [Concomitant]
     Active Substance: INDAPAMIDE
     Indication: Hypertension
     Route: 065

REACTIONS (15)
  - Myocardial ischaemia [Recovered/Resolved]
  - Polyneuropathy [Recovered/Resolved]
  - Nephropathy [Recovered/Resolved]
  - Albuminuria [Recovered/Resolved]
  - Blood pressure increased [Recovered/Resolved]
  - Systolic hypertension [Recovered/Resolved]
  - Arterial disorder [Recovered/Resolved]
  - Blood creatinine increased [Recovered/Resolved]
  - Blood triglycerides increased [Recovered/Resolved]
  - Glycosylated haemoglobin increased [Recovered/Resolved]
  - Dyspnoea [Recovered/Resolved]
  - Blood cholesterol increased [Recovered/Resolved]
  - Liver disorder [Recovered/Resolved]
  - Heart rate increased [Recovered/Resolved]
  - Treatment noncompliance [Unknown]
